FAERS Safety Report 26095349 (Version 1)
Quarter: 2025Q4

REPORT INFORMATION
  Report Type: Spontaneous
  Country: US (occurrence: US)
  Receive Date: 20251127
  Receipt Date: 20251127
  Transmission Date: 20260117
  Serious: No
  Sender: SANDOZ
  Company Number: US-SANDOZ-SDZ2025US088475

PATIENT
  Sex: Female

DRUGS (2)
  1. PREDNISOLONE ACETATE [Suspect]
     Active Substance: PREDNISOLONE ACETATE
     Indication: Product used for unknown indication
     Dosage: 1% 5ML
     Route: 047
  2. OFLOXACIN [Concomitant]
     Active Substance: OFLOXACIN
     Indication: Seizure
     Route: 047

REACTIONS (3)
  - Eye irritation [Unknown]
  - Device difficult to use [Unknown]
  - Product use complaint [Unknown]
